FAERS Safety Report 7577811-7 (Version None)
Quarter: 2011Q2

REPORT INFORMATION
  Report Type: 
  Country: None (occurrence: None)
  Receive Date: 20110628
  Receipt Date: 20110615
  Transmission Date: 20111010
  Serious: Yes (Other)
  Sender: FDA-Public Use
  Company Number: PHHY2011US27419

PATIENT
  Sex: Male

DRUGS (4)
  1. ZORTEZORBE [Concomitant]
  2. SANDOSTATIN LAR [Suspect]
     Dosage: 1 PER 28 DAYS
  3. ZOMETA [Concomitant]
  4. AVASTIN [Concomitant]

REACTIONS (5)
  - WEIGHT DECREASED [None]
  - ASTHENIA [None]
  - DECREASED APPETITE [None]
  - LOSS OF CONSCIOUSNESS [None]
  - DIARRHOEA [None]
